FAERS Safety Report 12592128 (Version 1)
Quarter: 2016Q3

REPORT INFORMATION
  Report Type: Spontaneous
  Country: US (occurrence: None)
  Receive Date: 20160722
  Receipt Date: 20160722
  Transmission Date: 20161109
  Serious: Yes (Other)
  Sender: FDA-Public Use
  Company Number: GB-ALSI-201600201

PATIENT
  Age: 76 Year
  Sex: Male

DRUGS (1)
  1. OXYGEN. [Suspect]
     Active Substance: OXYGEN

REACTIONS (4)
  - Refusal of treatment by patient [None]
  - Thermal burn [None]
  - Intentional product misuse [None]
  - Emotional distress [None]
